FAERS Safety Report 10029100 (Version 1)
Quarter: 2014Q1

REPORT INFORMATION
  Report Type: Spontaneous
  Country: US (occurrence: US)
  Receive Date: 20140321
  Receipt Date: 20140321
  Transmission Date: 20141002
  Serious: No
  Sender: FDA-Public Use
  Company Number: US-PFIZER INC-2014081088

PATIENT
  Age: 59 Year
  Sex: Female

DRUGS (6)
  1. GEODON [Suspect]
     Dosage: UNK
  2. PREMARIN [Suspect]
     Dosage: UNK
  3. XANAX [Suspect]
     Dosage: UNK
  4. TETRACYCLINE HCL [Suspect]
     Dosage: UNK
  5. ASA [Suspect]
     Dosage: UNK
  6. ZOLPIDEM [Suspect]
     Dosage: UNK

REACTIONS (1)
  - Drug hypersensitivity [Unknown]
